FAERS Safety Report 9433273 (Version 1)
Quarter: 2013Q3

REPORT INFORMATION
  Report Type: Spontaneous
  Country: IT (occurrence: IT)
  Receive Date: 20130731
  Receipt Date: 20130731
  Transmission Date: 20140515
  Serious: Yes (Other)
  Sender: FDA-Public Use
  Company Number: IT-GLAXOSMITHKLINE-B0912005A

PATIENT
  Age: 60 Year
  Sex: Male

DRUGS (1)
  1. ZEFIX [Suspect]
     Indication: ANTIVIRAL PROPHYLAXIS
     Dosage: 1000MG PER DAY
     Route: 048
     Dates: start: 20130618, end: 20130717

REACTIONS (3)
  - Fanconi syndrome acquired [Unknown]
  - Acidosis [Unknown]
  - Off label use [Unknown]
